FAERS Safety Report 5490585-9 (Version None)
Quarter: 2007Q4

REPORT INFORMATION
  Report Type: 
  Country: None (occurrence: None)
  Receive Date: 20071019
  Receipt Date: 20071017
  Transmission Date: 20080405
  Serious: Yes (Disabling, Other)
  Sender: FDA-Public Use
  Company Number: GB-BAYER-200711002BNE

PATIENT
  Age: 47 Year
  Sex: Male
  Weight: 100 kg

DRUGS (3)
  1. AVELOX [Suspect]
     Indication: LOWER RESPIRATORY TRACT INFECTION
     Route: 048
     Dates: start: 20070125
  2. ROSUVASTATIN [Concomitant]
  3. EZETIMIBE [Concomitant]

REACTIONS (4)
  - ARTHRITIS [None]
  - MONARTHRITIS [None]
  - SYNOVITIS [None]
  - TENDONITIS [None]
